FAERS Safety Report 6399447-6 (Version None)
Quarter: 2009Q4

REPORT INFORMATION
  Report Type: 
  Country: None (occurrence: None)
  Receive Date: 20091014
  Receipt Date: 20091001
  Transmission Date: 20100525
  Serious: Yes (Other)
  Sender: FDA-Public Use
  Company Number: PHHY2009BR42436

PATIENT
  Age: 78 Year
  Sex: Female

DRUGS (1)
  1. EXELON [Suspect]
     Dosage: UNK

REACTIONS (2)
  - ABASIA [None]
  - PAIN [None]
